FAERS Safety Report 9785199 (Version 2)
Quarter: 2014Q2

REPORT INFORMATION
  Report Type: Spontaneous
  Country: US (occurrence: None)
  Receive Date: 20131224
  Receipt Date: 20140627
  Transmission Date: 20141212
  Serious: Yes (Other)
  Sender: FDA-Public Use
  Company Number: CIO13076744

PATIENT
  Age: 7 Year
  Sex: Female
  Weight: 25.4 kg

DRUGS (3)
  1. CREST CAVITY PROTECTION [Suspect]
     Dosage: 1 APPLIC, 1 TIME ONLY, INTRAORAL
     Route: 048
     Dates: start: 20131211, end: 20131211
  2. ANTI-ASTHMATICS [Concomitant]
  3. ALL OTHER THERAPEUTIC PRODUCTS [Concomitant]

REACTIONS (1)
  - Anaphylactic shock [None]
